FAERS Safety Report 20245797 (Version 1)
Quarter: 2021Q4

REPORT INFORMATION
  Report Type: Spontaneous
  Country: ES (occurrence: ES)
  Receive Date: 20211229
  Receipt Date: 20211229
  Transmission Date: 20220304
  Serious: Yes (Life-Threatening, Hospitalization, Other)
  Sender: FDA-Public Use
  Company Number: ES-MLMSERVICE-20211214-3269066-1

PATIENT
  Age: 75 Year
  Sex: Male

DRUGS (1)
  1. VANCOMYCIN [Suspect]
     Active Substance: VANCOMYCIN
     Indication: Skin ulcer

REACTIONS (2)
  - Anaphylactic shock [Recovering/Resolving]
  - Kounis syndrome [Recovering/Resolving]
